FAERS Safety Report 6848973-1 (Version None)
Quarter: 2010Q3

REPORT INFORMATION
  Report Type: 
  Country: None (occurrence: None)
  Receive Date: 20100716
  Receipt Date: 20070924
  Transmission Date: 20110219
  Serious: No
  Sender: FDA-Public Use
  Company Number: US-PFIZER INC-2007081082

PATIENT
  Sex: Female
  Weight: 113.6 kg

DRUGS (9)
  1. CHANTIX [Suspect]
     Indication: SMOKING CESSATION THERAPY
     Dates: start: 20070701
  2. DEPAKOTE [Concomitant]
  3. LORAZEPAM [Concomitant]
  4. SEROQUEL [Concomitant]
  5. CYMBALTA [Concomitant]
  6. ZOLPIDEM [Concomitant]
  7. NEXIUM [Concomitant]
  8. GLUCOPHAGE [Concomitant]
  9. ESTRADIOL [Concomitant]

REACTIONS (1)
  - DEPRESSION [None]
